FAERS Safety Report 25976701 (Version 1)
Quarter: 2025Q4

REPORT INFORMATION
  Report Type: Spontaneous
  Country: JP (occurrence: JP)
  Receive Date: 20251029
  Receipt Date: 20251029
  Transmission Date: 20260119
  Serious: Yes (Other)
  Sender: GLAXOSMITHKLINE
  Company Number: JP-GSKJP-JP2025JPN137903AA

PATIENT

DRUGS (1)
  1. DAPRODUSTAT [Suspect]
     Active Substance: DAPRODUSTAT
     Dosage: UNK

REACTIONS (2)
  - Shunt occlusion [Unknown]
  - Malignant neoplasm progression [Unknown]
